FAERS Safety Report 4606443-5 (Version None)
Quarter: 2005Q1

REPORT INFORMATION
  Report Type: 
  Country: None (occurrence: None)
  Receive Date: 20050311
  Receipt Date: 20041110
  Transmission Date: 20050727
  Serious: Yes (Hospitalization, Disabling, Other)
  Sender: FDA-Public Use
  Company Number: DE-MERCK-0411DEU00210

PATIENT
  Age: 62 Year
  Sex: Female
  Weight: 52 kg

DRUGS (6)
  1. VIOXX [Suspect]
     Indication: RHEUMATOID ARTHRITIS
     Route: 048
     Dates: start: 20020625, end: 20020731
  2. VIOXX [Suspect]
     Route: 048
     Dates: start: 20020801, end: 20041001
  3. ZOCOR [Concomitant]
     Indication: HYPERLIPIDAEMIA
     Route: 048
     Dates: start: 20000829
  4. METHOTREXATE [Concomitant]
     Indication: RHEUMATOID ARTHRITIS
     Route: 065
     Dates: start: 20020820
  5. PREDNISONE [Concomitant]
     Indication: RHEUMATOID ARTHRITIS
     Route: 065
     Dates: start: 20020801
  6. FOLIC ACID [Concomitant]
     Route: 048
     Dates: start: 20020801

REACTIONS (3)
  - CEREBRAL INFARCTION [None]
  - CEREBROVASCULAR ACCIDENT [None]
  - DEPRESSION [None]
